FAERS Safety Report 5726709-5 (Version None)
Quarter: 2008Q2

REPORT INFORMATION
  Report Type: 
  Country: None (occurrence: None)
  Receive Date: 20080502
  Receipt Date: 20080423
  Transmission Date: 20081010
  Serious: Yes (Other)
  Sender: FDA-Public Use
  Company Number: BR-PFIZER INC-2007070772

PATIENT
  Sex: Male
  Weight: 69 kg

DRUGS (3)
  1. XALATAN [Suspect]
     Indication: GLAUCOMA
     Route: 047
  2. TRAVATAN [Suspect]
     Indication: GLAUCOMA
  3. INDERAL [Concomitant]

REACTIONS (3)
  - BLINDNESS [None]
  - EYE INFECTION [None]
  - EYE IRRITATION [None]
